FAERS Safety Report 8989152 (Version 1)
Quarter: 2012Q4

REPORT INFORMATION
  Report Type: 
  Country: US (occurrence: US)
  Receive Date: 20121228
  Receipt Date: 20121228
  Transmission Date: 20130627
  Serious: Yes (Hospitalization)
  Sender: FDA-Public Use
  Company Number: US-ASTELLAS-2012US012748

PATIENT
  Age: 92 Year
  Sex: Male

DRUGS (1)
  1. XTANDI [Suspect]
     Indication: NEOPLASM PROSTATE
     Dosage: 80 mg, UID/QD
     Route: 048
     Dates: start: 20121025, end: 20121219

REACTIONS (2)
  - Underdose [Unknown]
  - Hospice care [Unknown]
